FAERS Safety Report 4957514-5 (Version None)
Quarter: 2006Q1

REPORT INFORMATION
  Report Type: 
  Country: None (occurrence: None)
  Receive Date: 20060330
  Receipt Date: 20051208
  Transmission Date: 20060701
  Serious: No
  Sender: FDA-Public Use
  Company Number: US-GLAXOSMITHKLINE-A0585149A

PATIENT
  Age: 72 Year
  Sex: Female

DRUGS (3)
  1. FLOVENT [Suspect]
     Indication: BRONCHITIS
     Dosage: 220MCG TWICE PER DAY
     Route: 055
     Dates: end: 20051207
  2. ALBUTEROL [Concomitant]
  3. ATROVENT [Concomitant]

REACTIONS (3)
  - EYE PAIN [None]
  - MIGRAINE [None]
  - PHOTOPSIA [None]
